FAERS Safety Report 19133593 (Version 1)
Quarter: 2021Q2

REPORT INFORMATION
  Report Type: Spontaneous
  Country: US (occurrence: US)
  Receive Date: 20210414
  Receipt Date: 20210414
  Transmission Date: 20210717
  Serious: Yes (Hospitalization)
  Sender: FDA-Public Use
  Company Number: US-MYLANLABS-2021M1021926

PATIENT
  Age: 43 Year
  Sex: Male

DRUGS (3)
  1. FENTANYL. [Suspect]
     Active Substance: FENTANYL
     Indication: NEURALGIA
     Dosage: IV DRIP AS NEEDED
     Route: 040
  2. HYDROMORPHONE [Suspect]
     Active Substance: HYDROMORPHONE
     Indication: NEURALGIA
     Dosage: 0.5?1 MG EVERY 3 HOURS AS NEEDED
     Route: 042
  3. CHLORPROMAZINE. [Suspect]
     Active Substance: CHLORPROMAZINE
     Indication: DELIRIUM
     Dosage: 25 MILLIGRAM, Q6H
     Route: 042

REACTIONS (1)
  - Drug ineffective [Unknown]
